FAERS Safety Report 5713455-7 (Version None)
Quarter: 2008Q2

REPORT INFORMATION
  Report Type: 
  Country: None (occurrence: None)
  Receive Date: 20080422
  Receipt Date: 20080326
  Transmission Date: 20081010
  Serious: No
  Sender: FDA-Public Use
  Company Number: US-BOEHRINGER INGELHEIM GMBH, GERMANY-2008-BP-02630BP

PATIENT
  Sex: Female

DRUGS (1)
  1. MIRAPEX [Suspect]

REACTIONS (3)
  - LIBIDO INCREASED [None]
  - OEDEMA [None]
  - PATHOLOGICAL GAMBLING [None]
